FAERS Safety Report 23598388 (Version 1)
Quarter: 2024Q1

REPORT INFORMATION
  Report Type: Spontaneous
  Country: US (occurrence: US)
  Receive Date: 20240305
  Receipt Date: 20240305
  Transmission Date: 20240410
  Serious: No
  Sender: FDA-Public Use
  Company Number: US-SA-2024SA067421

PATIENT
  Age: 62 Year
  Sex: Male

DRUGS (2)
  1. ALPROLIX [Suspect]
     Active Substance: EFTRENONACOG ALFA
     Dosage: 8700 U (+/- 10%), QW PROPHYLAXIS DOSING AND DAILY ONE TIME ON DEMAND FOR A BLEED
     Route: 042
  2. ALPROLIX [Suspect]
     Active Substance: EFTRENONACOG ALFA
     Dosage: 8700 U (+/- 10%), QW PROPHYLAXIS DOSING AND DAILY ONE TIME ON DEMAND FOR A BLEED
     Route: 042

REACTIONS (2)
  - Limb injury [Recovered/Resolved]
  - Traumatic haemorrhage [Recovered/Resolved]

NARRATIVE: CASE EVENT DATE: 20240205
